FAERS Safety Report 4507906-3 (Version None)
Quarter: 2004Q4

REPORT INFORMATION
  Report Type: 
  Country: None (occurrence: None)
  Receive Date: 20041118
  Receipt Date: 20041102
  Transmission Date: 20050328
  Serious: Yes (Other)
  Sender: FDA-Public Use
  Company Number: 2004-BP-11100RO

PATIENT
  Age: 38 Year
  Sex: Male

DRUGS (5)
  1. PREDNISONE TAB [Suspect]
     Indication: NON-HODGKIN'S LYMPHOMA
     Dosage: 4 CYCLES (CYCLIC)
     Dates: start: 20040823, end: 20041006
  2. CYCLOPHOSPHAMIDE [Suspect]
     Indication: NON-HODGKIN'S LYMPHOMA
     Dosage: 4 CYCLES (CYCLIC)
     Dates: start: 20040823, end: 20041006
  3. DOXORUBICIN HCL [Suspect]
     Indication: NON-HODGKIN'S LYMPHOMA
     Dosage: 4 CYCLES (CYCLIC)
     Dates: start: 20040823, end: 20041006
  4. RITUXIMAB (RITUXIMAB) [Suspect]
     Indication: NON-HODGKIN'S LYMPHOMA
     Dosage: 4 CYCLES (CYCLIC)
     Dates: start: 20040823, end: 20041006
  5. ONCOVIN [Suspect]
     Indication: NON-HODGKIN'S LYMPHOMA
     Dosage: 4 CYCLES (CYCLIC)

REACTIONS (2)
  - COMPUTERISED TOMOGRAM ABNORMAL [None]
  - PULMONARY EMBOLISM [None]
